FAERS Safety Report 5927962-5 (Version None)
Quarter: 2008Q3

REPORT INFORMATION
  Report Type: 
  Country: None (occurrence: None)
  Receive Date: 20080923
  Receipt Date: 20070919
  Transmission Date: 20090109
  Serious: Yes (Other)
  Sender: FDA-Public Use
  Company Number: WAES 0709USA03356

PATIENT
  Age: 55 Year
  Sex: Male

DRUGS (1)
  1. VYTORIN [Suspect]
     Dosage: 10-20 MG/UNK/PO
     Route: 048

REACTIONS (2)
  - HEPATITIS [None]
  - RHABDOMYOLYSIS [None]
